FAERS Safety Report 12216642 (Version 1)
Quarter: 2016Q1

REPORT INFORMATION
  Report Type: Spontaneous
  Country: US (occurrence: None)
  Receive Date: 20160328
  Receipt Date: 20160328
  Transmission Date: 20160526
  Serious: Yes (Life-Threatening, Hospitalization)
  Sender: FDA-Public Use
  Company Number: None

PATIENT
  Age: 58 Year
  Sex: Male
  Weight: 69 kg

DRUGS (2)
  1. PEMBROLIZUMAB. [Suspect]
     Active Substance: PEMBROLIZUMAB
     Indication: CARDIOVASCULAR DISORDER
     Route: 042
     Dates: start: 20160108, end: 20160128
  2. PEMBROLIZUMAB. [Suspect]
     Active Substance: PEMBROLIZUMAB
     Indication: SURGERY
     Route: 042
     Dates: start: 20160108, end: 20160128

REACTIONS (6)
  - Respiratory depression [None]
  - Unresponsive to stimuli [None]
  - Infusion related reaction [None]
  - Hypotension [None]
  - Pulse absent [None]
  - Cardio-respiratory arrest [None]

NARRATIVE: CASE EVENT DATE: 20160128
